FAERS Safety Report 22189912 (Version 1)
Quarter: 2023Q2

REPORT INFORMATION
  Report Type: Report from Study
  Country: BR (occurrence: BR)
  Receive Date: 20230410
  Receipt Date: 20230410
  Transmission Date: 20230721
  Serious: Yes (Other)
  Sender: FDA-Public Use
  Company Number: BR-CELLTRION INC.-2023BR006947

PATIENT

DRUGS (5)
  1. INFLIXIMAB [Suspect]
     Active Substance: INFLIXIMAB
     Indication: Rheumatoid arthritis
     Dosage: 2 AMPOULES EVERY 2 MONTHS
     Route: 042
     Dates: start: 20221202
  2. PURAN [Concomitant]
     Active Substance: LEVOTHYROXINE SODIUM
     Indication: Hypothyroidism
     Dosage: 1 PILL A DAY, START: 40 YEASR AGO
     Route: 048
  3. ENALAPRIL [Concomitant]
     Active Substance: ENALAPRIL
     Indication: Hypertension
     Dosage: 1 PILL A DAY, START: 10 YEARS AGO
     Route: 048
  4. PREDNISONE [Concomitant]
     Active Substance: PREDNISONE
     Indication: Rheumatoid arthritis
     Dosage: 1 PILL A DAY, START: 8 YEARS AGO
     Route: 048
  5. CYCLOBENZAPRINE [Concomitant]
     Active Substance: CYCLOBENZAPRINE
     Indication: Rheumatoid arthritis
     Dosage: 1 PILL A DAY, START: 8 YEARS AGO
     Route: 048

REACTIONS (3)
  - Rheumatoid arthritis [Unknown]
  - Symptom recurrence [Unknown]
  - Therapeutic response shortened [Unknown]
